FAERS Safety Report 8416141-8 (Version None)
Quarter: 2012Q2

REPORT INFORMATION
  Report Type: 
  Country: None (occurrence: None)
  Receive Date: 20120606
  Receipt Date: 20120531
  Transmission Date: 20120825
  Serious: Yes (Hospitalization)
  Sender: FDA-Public Use
  Company Number: JP-PFIZER INC-2012133249

PATIENT
  Age: 51 Year
  Sex: Female
  Weight: 76.6 kg

DRUGS (15)
  1. CRESTOR [Concomitant]
     Dosage: UNK
     Route: 048
  2. SUNITINIB MALATE [Suspect]
     Dosage: 25 MG, 1X/DAY
     Route: 048
     Dates: start: 20090915
  3. SUNITINIB MALATE [Suspect]
     Dosage: 25 MG, 1X/DAY
     Route: 048
     Dates: start: 20100120
  4. NORVASC [Concomitant]
     Dosage: UNK
     Route: 048
  5. SUNITINIB MALATE [Suspect]
     Dosage: 25 MG, 1X/DAY
     Route: 048
     Dates: start: 20091209
  6. SUNITINIB MALATE [Suspect]
     Dosage: 25 MG, 1X/DAY
     Route: 048
     Dates: start: 20091028
  7. GANATON [Concomitant]
     Dosage: UNK
     Route: 048
     Dates: start: 20090817
  8. LEVOTHYROXINE SODIUM [Concomitant]
     Dosage: 100 UG, 1X/DAY
     Route: 048
     Dates: start: 20100106
  9. SUNITINIB MALATE [Suspect]
     Dosage: 25 MG, 1X/DAY
     Route: 048
     Dates: start: 20100406
  10. METFORMIN HCL [Concomitant]
     Dosage: UNK
     Route: 048
  11. SUNITINIB MALATE [Suspect]
     Indication: RENAL CELL CARCINOMA
     Dosage: 25 MG, 1X/DAY
     Route: 048
     Dates: start: 20090805, end: 20090901
  12. NOVORAPID FLEXPEN [Concomitant]
     Dosage: UNK
  13. FAMOTIDINE [Concomitant]
     Dosage: UNK
     Route: 048
     Dates: start: 20090811
  14. KERATINAMIN [Concomitant]
     Dosage: UNK
     Route: 062
     Dates: start: 20090821
  15. OMEPRAZOLE [Concomitant]
     Dosage: 10 MG, 1X/DAY
     Route: 048
     Dates: start: 20091001

REACTIONS (1)
  - OSTEITIS [None]
